FAERS Safety Report 7794796-9 (Version None)
Quarter: 2011Q4

REPORT INFORMATION
  Report Type: 
  Country: None (occurrence: None)
  Receive Date: 20111004
  Receipt Date: 20110927
  Transmission Date: 20120403
  Serious: No
  Sender: FDA-Public Use
  Company Number: US-PFIZER INC-2011203143

PATIENT
  Sex: Female
  Weight: 71.202 kg

DRUGS (4)
  1. HYDROCODONE BITARTRATE [Interacting]
     Indication: WISDOM TEETH REMOVAL
     Dosage: 500 MG, DAILY
     Dates: start: 20110830
  2. IBUPROFEN (ADVIL) [Interacting]
     Indication: WISDOM TEETH REMOVAL
     Dosage: THREE TABLETS
     Route: 048
     Dates: start: 20110830
  3. VICODIN [Suspect]
     Dosage: UNK
  4. IBUPROFEN (ADVIL) [Interacting]
     Indication: PAIN

REACTIONS (3)
  - NAUSEA [None]
  - ABDOMINAL DISCOMFORT [None]
  - DRUG INTERACTION [None]
